FAERS Safety Report 9156558 (Version 5)
Quarter: 2013Q2

REPORT INFORMATION
  Report Type: Spontaneous
  Country: US (occurrence: None)
  Receive Date: 20130208
  Receipt Date: 20130415
  Transmission Date: 20140414
  Serious: Yes (Hospitalization, Other)
  Sender: FDA-Public Use
  Company Number: 2013-0461

PATIENT
  Age: 55 Year
  Sex: Female
  Weight: 99.33 kg

DRUGS (4)
  1. SOMATULINE [Suspect]
     Indication: ACROMEGALY
     Dosage: 90 MG (90 MG, 1 IN 28 D), SUBCUTANEOUS
     Dates: start: 201012
  2. SINGULAIR [Concomitant]
  3. FELODIPINE (FELODIPINE) [Concomitant]
  4. COZAAR (LOSARTAN POTASSIUM)? [Concomitant]

REACTIONS (13)
  - Convulsion [None]
  - Fall [None]
  - Concussion [None]
  - Amnesia [None]
  - Injection site haemorrhage [None]
  - Nail disorder [None]
  - Abdominal distension [None]
  - Alopecia [None]
  - Injection site pain [None]
  - Weight loss poor [None]
  - Asthenia [None]
  - Loss of consciousness [None]
  - Inappropriate affect [None]
